FAERS Safety Report 23821304 (Version 1)
Quarter: 2024Q2

REPORT INFORMATION
  Report Type: Spontaneous
  Country: US (occurrence: US)
  Receive Date: 20240506
  Receipt Date: 20240506
  Transmission Date: 20240716
  Serious: No
  Sender: FDA-Public Use
  Company Number: US-PFIZER INC-202400100153

PATIENT
  Age: 36 Year
  Sex: Female

DRUGS (13)
  1. XELJANZ [Suspect]
     Active Substance: TOFACITINIB CITRATE
     Dosage: 5 MG
     Dates: start: 20200527
  2. NORTRIPTYLINE HYDROCHLORIDE [Concomitant]
     Active Substance: NORTRIPTYLINE HYDROCHLORIDE
  3. CONSTULOSE [Concomitant]
     Active Substance: LACTULOSE
     Dosage: 10 G/15
  4. HYDROXYCHLOROQUINE SULFATE [Concomitant]
     Active Substance: HYDROXYCHLOROQUINE SULFATE
  5. CYCLOBENZAPRINE HYDROCHLORIDE [Concomitant]
     Active Substance: CYCLOBENZAPRINE HYDROCHLORIDE
  6. NAPROXEN [Concomitant]
     Active Substance: NAPROXEN
  7. METRONIDAZOLE [Concomitant]
     Active Substance: METRONIDAZOLE
  8. XIFAXAN [Concomitant]
     Active Substance: RIFAXIMIN
  9. CALCIUM [Concomitant]
     Active Substance: CALCIUM
  10. MAGNESIUM [Concomitant]
     Active Substance: MAGNESIUM
  11. MULTI VITAMIN [ASCORBIC ACID;COLECALCIFEROL;NICOTINAMIDE;PANTHENOL;PYR [Concomitant]
     Dosage: UNK, DAILY
  12. PROBIOTIC [BIFIDOBACTERIUM BIFIDUM;BIFIDOBACTERIUM LACTIS;BIFIDOBACTER [Concomitant]
  13. VITAMIN D3 [Concomitant]
     Active Substance: CHOLECALCIFEROL

REACTIONS (2)
  - Bacterial infection [Unknown]
  - Fungal pharyngitis [Unknown]
